FAERS Safety Report 24308836 (Version 1)
Quarter: 2024Q3

REPORT INFORMATION
  Report Type: Spontaneous
  Country: US (occurrence: None)
  Receive Date: 20240911
  Receipt Date: 20240911
  Transmission Date: 20241017
  Serious: Yes (Other)
  Sender: Public
  Company Number: None

PATIENT
  Age: 77 Year
  Sex: Female
  Weight: 71.1 kg

DRUGS (13)
  1. REMDESIVIR [Suspect]
     Active Substance: REMDESIVIR
     Indication: COVID-19
     Dosage: FREQUENCY : DAILY;?
     Route: 041
  2. AZITHROMYCIN [Concomitant]
     Active Substance: AZITHROMYCIN
     Dates: start: 20240910
  3. BACLOFEN [Concomitant]
     Active Substance: BACLOFEN
  4. CLONAZEPAM [Concomitant]
     Active Substance: CLONAZEPAM
  5. CEFTRIAXONE [Concomitant]
     Active Substance: CEFTRIAXONE\CEFTRIAXONE SODIUM
     Dates: start: 20240910
  6. LISINOPRIL [Concomitant]
     Active Substance: LISINOPRIL
  7. METOPROLOL [Concomitant]
     Active Substance: METOPROLOL
  8. ENOXAPARIN [Concomitant]
     Active Substance: ENOXAPARIN
  9. FUROSEMIDE [Concomitant]
     Active Substance: FUROSEMIDE
  10. LOPERAMIDE [Concomitant]
     Active Substance: LOPERAMIDE
  11. OXYBUTYNIN [Concomitant]
     Active Substance: OXYBUTYNIN\OXYBUTYNIN CHLORIDE
  12. MIRABEGRON [Concomitant]
     Active Substance: MIRABEGRON
  13. POTASSIUM [Concomitant]
     Active Substance: POTASSIUM

REACTIONS (6)
  - Dyspnoea [None]
  - Cyanosis [None]
  - Oxygen saturation decreased [None]
  - Wheezing [None]
  - Somnolence [None]
  - Hypotension [None]

NARRATIVE: CASE EVENT DATE: 20240910
